FAERS Safety Report 8230287-9 (Version None)
Quarter: 2012Q1

REPORT INFORMATION
  Report Type: 
  Country: None (occurrence: None)
  Receive Date: 20120307
  Receipt Date: 20090909
  Transmission Date: 20120608
  Serious: Yes (Other)
  Sender: FDA-Public Use
  Company Number: PHEH2009US11556

PATIENT
  Age: 49 Year
  Sex: Male

DRUGS (1)
  1. AFINITOR [Suspect]

REACTIONS (4)
  - GLOSSODYNIA [None]
  - STOMATITIS [None]
  - NEOPLASM PROGRESSION [None]
  - OROPHARYNGEAL PAIN [None]
